FAERS Safety Report 6174393-1 (Version None)
Quarter: 2009Q2

REPORT INFORMATION
  Report Type: 
  Country: None (occurrence: None)
  Receive Date: 20090430
  Receipt Date: 20090422
  Transmission Date: 20091009
  Serious: Yes (Disabling)
  Sender: FDA-Public Use
  Company Number: US-PFIZER INC-2009203383

PATIENT
  Sex: Male
  Weight: 99.79 kg

DRUGS (7)
  1. VIAGRA [Suspect]
     Indication: ERECTILE DYSFUNCTION
     Dosage: UNK
     Dates: start: 20060101
  2. LIPITOR [Suspect]
     Indication: BLOOD CHOLESTEROL INCREASED
     Dates: start: 20060101, end: 20070101
  3. CYMBALTA [Concomitant]
     Dosage: UNK
  4. FUROSEMIDE [Concomitant]
     Dosage: 40 MG, 1X/DAY
  5. LISINOPRIL [Concomitant]
     Dosage: 10 MG, UNK
  6. SIMVASTATIN [Concomitant]
     Dosage: UNK
  7. FOCALIN [Concomitant]
     Dosage: UNK

REACTIONS (1)
  - BLINDNESS [None]
